FAERS Safety Report 14229266 (Version 1)
Quarter: 2017Q4

REPORT INFORMATION
  Report Type: Spontaneous
  Country: US (occurrence: US)
  Receive Date: 20171128
  Receipt Date: 20171128
  Transmission Date: 20180321
  Serious: No
  Sender: FDA-Public Use
  Company Number: US-PFIZER INC-2017503611

PATIENT
  Age: 73 Year
  Sex: Female
  Weight: 73 kg

DRUGS (17)
  1. JANUVIA [Concomitant]
     Active Substance: SITAGLIPTIN PHOSPHATE
     Indication: DIABETES MELLITUS
     Dosage: 100 MG, 1X/DAY
  2. LEVOTHYROXINE. [Concomitant]
     Active Substance: LEVOTHYROXINE
     Dosage: 82 MG, 1X/DAY
  3. TRIGOSAMINE [Concomitant]
     Active Substance: GLUCOSAMINE\HYALURONATE SODIUM
     Indication: ARTHRITIS
     Dosage: ONE, DAILY
  4. TRIGOSAMINE [Concomitant]
     Active Substance: GLUCOSAMINE\HYALURONATE SODIUM
     Indication: ARTHROPATHY
  5. CENTRUM SILVER /07422601/ [Concomitant]
     Dosage: UNK, 1X/DAY
  6. VITAMIN D [Concomitant]
     Active Substance: CHOLECALCIFEROL
     Dosage: 5000 MG, 1X/DAY
  7. TRICOR [Concomitant]
     Active Substance: FENOFIBRATE
     Dosage: 145 MG, 1X/DAY (AT BEDTIME)
  8. ASPIRIN /00002701/ [Concomitant]
     Active Substance: ASPIRIN
     Dosage: 81 MG, 1X/DAY
  9. ATROPINE SULFATE/DIPHENOXYLATE HYDROCHLORIDE [Suspect]
     Active Substance: ATROPINE SULFATE\DIPHENOXYLATE HYDROCHLORIDE
     Indication: DIARRHOEA
     Dosage: UNK
     Dates: start: 201604
  10. LISINOPRIL HCTZ [Concomitant]
     Active Substance: HYDROCHLOROTHIAZIDE\LISINOPRIL
     Dosage: UNK, 2X/DAY
  11. VYTORIN [Concomitant]
     Active Substance: EZETIMIBE\SIMVASTATIN
     Dosage: UNK, 1X/DAY (AT BEDTIME)
  12. IMODIUM [Concomitant]
     Active Substance: LOPERAMIDE HYDROCHLORIDE
     Indication: DIARRHOEA
     Dosage: UNK
  13. OMEGA 3 /01333901/ [Concomitant]
     Active Substance: FISH OIL\TOCOPHEROL
     Dosage: 1000 MG, 2X/DAY
  14. CO-Q 10 [Concomitant]
     Active Substance: UBIDECARENONE
     Dosage: 100 MG, 1X/DAY
  15. LOPRESSOR [Concomitant]
     Active Substance: METOPROLOL TARTRATE
     Dosage: 100 MG, 2X/DAY
  16. METFORMIN [Concomitant]
     Active Substance: METFORMIN HYDROCHLORIDE
     Dosage: 1000 MG, 2X/DAY
  17. TRIGOSAMINE [Concomitant]
     Active Substance: GLUCOSAMINE\HYALURONATE SODIUM
     Indication: BACK DISORDER

REACTIONS (3)
  - Product use issue [Unknown]
  - Recalled product [Unknown]
  - Drug effect incomplete [Unknown]
